FAERS Safety Report 19590386 (Version 1)
Quarter: 2021Q3

REPORT INFORMATION
  Report Type: Spontaneous
  Country: FR (occurrence: FR)
  Receive Date: 20210721
  Receipt Date: 20210721
  Transmission Date: 20211014
  Serious: Yes (Death)
  Sender: FDA-Public Use
  Company Number: FR-BAUSCH-BL-2021-024555

PATIENT
  Age: 58 Year
  Sex: Female

DRUGS (11)
  1. EXACYL [Suspect]
     Active Substance: TRANEXAMIC ACID
     Indication: HAEMORRHAGE
     Dosage: TOTAL. 0.5MG/5ML I.V SOLUTION INJECTABLE
     Route: 065
     Dates: start: 20210412, end: 20210412
  2. INIPOMP [Concomitant]
     Active Substance: PANTOPRAZOLE SODIUM
     Indication: PRODUCT USED FOR UNKNOWN INDICATION
     Route: 048
  3. MIDAZOLAM. [Suspect]
     Active Substance: MIDAZOLAM
     Indication: ANAESTHESIA
     Route: 026
     Dates: start: 20210412
  4. NAROPEINE [Suspect]
     Active Substance: ROPIVACAINE HYDROCHLORIDE
     Indication: ANAESTHESIA
     Dosage: TOTAL
     Route: 038
     Dates: start: 20210412, end: 20210412
  5. PAROXETINE. [Suspect]
     Active Substance: PAROXETINE
     Indication: DEPRESSION
     Route: 048
  6. DIPRIVAN [Suspect]
     Active Substance: PROPOFOL
     Indication: ANAESTHESIA
     Route: 026
     Dates: start: 20210412
  7. BREXIN [Concomitant]
     Indication: PRODUCT USED FOR UNKNOWN INDICATION
     Dosage: BREAKABLE
     Route: 048
  8. DEXAMETHASONE. [Suspect]
     Active Substance: DEXAMETHASONE
     Indication: ANAESTHESIA
     Route: 026
     Dates: start: 20210412, end: 20210412
  9. CEFAZOLINE [Suspect]
     Active Substance: CEFAZOLIN SODIUM
     Indication: ANTIBIOTIC PROPHYLAXIS
     Dosage: TOTAL
     Route: 026
     Dates: start: 20210412, end: 20210412
  10. EVICEL [Suspect]
     Active Substance: FIBRINOGEN HUMAN\THROMBIN HUMAN
     Indication: ANAESTHESIA
     Dosage: AS REQUIRED
     Route: 050
     Dates: start: 20210412, end: 20210412
  11. SUFENTANIL [Suspect]
     Active Substance: SUFENTANIL
     Indication: ANAESTHESIA
     Route: 026
     Dates: start: 20210412, end: 20210412

REACTIONS (1)
  - Tonic clonic movements [Fatal]

NARRATIVE: CASE EVENT DATE: 20210412
